FAERS Safety Report 7878946-1 (Version None)
Quarter: 2011Q4

REPORT INFORMATION
  Report Type: 
  Country: None (occurrence: None)
  Receive Date: 20111021
  Receipt Date: 20110314
  Transmission Date: 20120403
  Serious: Yes (Other)
  Sender: FDA-Public Use
  Company Number: SPV1-2011-00020

PATIENT
  Age: 20 Year
  Sex: Male
  Weight: 65.8 kg

DRUGS (2)
  1. VYVANSE [Suspect]
     Indication: ATTENTION DEFICIT/HYPERACTIVITY DISORDER
     Dosage: 40 MG, 1X/DAY:QD, ORAL; 40 MG CAPSULE AMOUNT OR FREQUENCY BY MOUTH, ORAL
     Route: 048
     Dates: start: 20100501, end: 20101129
  2. VYVANSE [Suspect]
     Indication: ATTENTION DEFICIT/HYPERACTIVITY DISORDER
     Dosage: 40 MG, 1X/DAY:QD, ORAL; 40 MG CAPSULE AMOUNT OR FREQUENCY BY MOUTH, ORAL
     Route: 048
     Dates: start: 20101130

REACTIONS (5)
  - DRUG DIVERSION [None]
  - PSYCHOTIC DISORDER [None]
  - ANGER [None]
  - INTENTIONAL DRUG MISUSE [None]
  - HYPERSOMNIA [None]
